FAERS Safety Report 23492859 (Version 1)
Quarter: 2024Q1

REPORT INFORMATION
  Report Type: Spontaneous
  Country: US (occurrence: US)
  Receive Date: 20240207
  Receipt Date: 20240207
  Transmission Date: 20240409
  Serious: Yes (Hospitalization, Other)
  Sender: FDA-Public Use
  Company Number: US-APOTEX-2024AP001849

PATIENT
  Sex: Male

DRUGS (11)
  1. ZONISAMIDE [Suspect]
     Active Substance: ZONISAMIDE
     Indication: Epilepsy
     Dosage: UNK
     Route: 065
  2. ZONISAMIDE [Suspect]
     Active Substance: ZONISAMIDE
     Indication: Lennox-Gastaut syndrome
  3. LACOSAMIDE [Suspect]
     Active Substance: LACOSAMIDE
     Indication: Epilepsy
     Dosage: UNK
     Route: 065
  4. LACOSAMIDE [Suspect]
     Active Substance: LACOSAMIDE
     Indication: Lennox-Gastaut syndrome
  5. FELBAMATE [Suspect]
     Active Substance: FELBAMATE
     Indication: Epilepsy
     Dosage: 1500 MILLIGRAM, TID
     Route: 065
     Dates: start: 2014
  6. FELBAMATE [Suspect]
     Active Substance: FELBAMATE
     Indication: Lennox-Gastaut syndrome
     Dosage: 300 MILLIGRAM, TID
     Route: 065
  7. FELBAMATE [Suspect]
     Active Substance: FELBAMATE
     Dosage: 600 MILLIGRAM, BID
     Route: 065
  8. RUFINAMIDE [Suspect]
     Active Substance: RUFINAMIDE
     Indication: Epilepsy
     Dosage: UNK
     Route: 065
  9. RUFINAMIDE [Suspect]
     Active Substance: RUFINAMIDE
     Indication: Lennox-Gastaut syndrome
  10. POTASSIUM CITRATE [Suspect]
     Active Substance: POTASSIUM CITRATE
     Indication: Hypocitraturia
     Dosage: 10 MILLIEQUIVALENT, BID
     Route: 065
     Dates: start: 2016, end: 2019
  11. POTASSIUM CITRATE [Suspect]
     Active Substance: POTASSIUM CITRATE
     Dosage: 20 MILLIEQUIVALENT, BID
     Route: 065
     Dates: start: 2017, end: 2022

REACTIONS (2)
  - Nephrolithiasis [Recovered/Resolved]
  - Anticonvulsant drug level increased [Recovered/Resolved]

NARRATIVE: CASE EVENT DATE: 20190101
